FAERS Safety Report 9713542 (Version 1)
Quarter: 2013Q4

REPORT INFORMATION
  Report Type: Spontaneous
  Country: US (occurrence: US)
  Receive Date: 20131126
  Receipt Date: 20131126
  Transmission Date: 20140711
  Serious: No
  Sender: FDA-Public Use
  Company Number: US-PFIZER INC-2013333436

PATIENT
  Sex: Male

DRUGS (2)
  1. IBUPROFEN [Suspect]
     Indication: ARTHRITIS
     Dosage: 800 MG, ONCE A DAY
  2. NAPROSYN [Suspect]
     Indication: ARTHRITIS
     Dosage: UNK

REACTIONS (3)
  - Extra dose administered [Unknown]
  - Drug effect incomplete [Unknown]
  - Gastric disorder [Unknown]
